FAERS Safety Report 9258024 (Version 1)
Quarter: 2013Q1

REPORT INFORMATION
  Report Type: Spontaneous
  Country: US (occurrence: None)
  Receive Date: 20121212
  Receipt Date: 20121212
  Transmission Date: 20140127
  Serious: No
  Sender: FDA-Public Use
  Company Number: 1208USA010927

PATIENT
  Age: 54 None
  Sex: Male

DRUGS (3)
  1. VICTRELIS (BOCEPREVIR)CAPSULE, 200MG [Suspect]
     Indication: HEPATITIS C
     Route: 048
  2. PEGINTRON (PEGINTERFERON ALFA-2B)POWDER FOR INJECTION [Suspect]
     Indication: HEPATITIS C
  3. RIBAPAK (RIBAVIRIN) [Suspect]
     Indication: HEPATITIS C

REACTIONS (1)
  - Decreased interest [None]
